FAERS Safety Report 18044161 (Version 1)
Quarter: 2020Q3

REPORT INFORMATION
  Report Type: Spontaneous
  Country: US (occurrence: US)
  Receive Date: 20200719
  Receipt Date: 20200719
  Transmission Date: 20201103
  Serious: Yes (Other)
  Sender: FDA-Public Use
  Company Number: None

PATIENT
  Age: 59 Year
  Sex: Female
  Weight: 55.35 kg

DRUGS (1)
  1. GLIMEPIRIDE  2MG [Suspect]
     Active Substance: GLIMEPIRIDE
     Indication: TYPE 2 DIABETES MELLITUS
     Route: 048
     Dates: start: 20200709, end: 20200716

REACTIONS (6)
  - Cardiac disorder [None]
  - Dyspnoea [None]
  - Product substitution issue [None]
  - Asthenia [None]
  - Manufacturing issue [None]
  - Peripheral swelling [None]

NARRATIVE: CASE EVENT DATE: 20200714
